FAERS Safety Report 23669144 (Version 5)
Quarter: 2025Q3

REPORT INFORMATION
  Report Type: Report from Study
  Country: US (occurrence: US)
  Receive Date: 20240325
  Receipt Date: 20250915
  Transmission Date: 20251021
  Serious: Yes (Other)
  Sender: ABBVIE
  Company Number: US-ABBVIE-5685876

PATIENT
  Age: 70 Year
  Sex: Male

DRUGS (1)
  1. SKYRIZI [Suspect]
     Active Substance: RISANKIZUMAB-RZAA
     Indication: Product used for unknown indication
     Dosage: DURATION TEXT: FEW YEARS
     Route: 058
     Dates: start: 20201127

REACTIONS (8)
  - Hepatic cirrhosis [Unknown]
  - Cholelithiasis [Unknown]
  - Diarrhoea [Unknown]
  - Hepatomegaly [Unknown]
  - Abdominal pain [Unknown]
  - Pancreatitis [Unknown]
  - Influenza [Unknown]
  - Hepatic cancer [Unknown]

NARRATIVE: CASE EVENT DATE: 20220101
